FAERS Safety Report 8832578 (Version 1)
Quarter: 2012Q4

REPORT INFORMATION
  Report Type: 
  Country: US (occurrence: US)
  Receive Date: 20121010
  Receipt Date: 20121010
  Transmission Date: 20130627
  Serious: Yes (Hospitalization)
  Sender: FDA-Public Use
  Company Number: US-BRISTOL-MYERS SQUIBB COMPANY-16981995

PATIENT
  Age: 54 Year
  Sex: Male

DRUGS (2)
  1. BARACLUDE [Suspect]
     Dosage: Approx 2 weeks.
     Route: 048
     Dates: start: 20120125, end: 20120209
  2. OMEPRAZOLE [Concomitant]

REACTIONS (2)
  - Hepatic encephalopathy [Recovered/Resolved]
  - Hepatic cirrhosis [Recovered/Resolved]
